FAERS Safety Report 14015158 (Version 1)
Quarter: 2017Q3

REPORT INFORMATION
  Report Type: Spontaneous
  Country: US (occurrence: US)
  Receive Date: 20170927
  Receipt Date: 20170927
  Transmission Date: 20171128
  Serious: Yes (Other)
  Sender: FDA-Public Use
  Company Number: None

PATIENT
  Sex: Male
  Weight: 105.12 kg

DRUGS (13)
  1. CAPECITABINE. [Suspect]
     Active Substance: CAPECITABINE
     Indication: COLON CANCER
     Route: 048
     Dates: start: 20161014, end: 20170927
  2. TRANSDERM-SCOP. [Concomitant]
  3. LORATADINE. [Concomitant]
     Active Substance: LORATADINE
  4. ATIVAN [Concomitant]
     Active Substance: LORAZEPAM
  5. SIMVASTATIN. [Concomitant]
     Active Substance: SIMVASTATIN
  6. XARELTO [Concomitant]
     Active Substance: RIVAROXABAN
  7. CAPECITABINE. [Suspect]
     Active Substance: CAPECITABINE
     Indication: LUNG NEOPLASM MALIGNANT
     Route: 048
     Dates: start: 20161014, end: 20170927
  8. PROAIR HFA [Concomitant]
     Active Substance: ALBUTEROL SULFATE
  9. IMODIUM A-D [Concomitant]
     Active Substance: LOPERAMIDE HYDROCHLORIDE
  10. LOMOTIL [Concomitant]
     Active Substance: ATROPINE SULFATE\DIPHENOXYLATE HYDROCHLORIDE
  11. CAPECITABINE. [Suspect]
     Active Substance: CAPECITABINE
     Indication: HEPATIC CANCER
     Route: 048
     Dates: start: 20161014, end: 20170927
  12. ONDANSETRON [Concomitant]
     Active Substance: ONDANSETRON
  13. OXYCODONE [Concomitant]
     Active Substance: OXYCODONE

REACTIONS (1)
  - Disease progression [None]
